FAERS Safety Report 15934319 (Version 3)
Quarter: 2019Q2

REPORT INFORMATION
  Report Type: Spontaneous
  Country: US (occurrence: US)
  Receive Date: 20190207
  Receipt Date: 20190418
  Transmission Date: 20190711
  Serious: No
  Sender: FDA-Public Use
  Company Number: US-PFIZER INC-2019048631

PATIENT
  Age: 84 Year
  Sex: Male
  Weight: 98 kg

DRUGS (1)
  1. LYRICA [Suspect]
     Active Substance: PREGABALIN
     Indication: NEUROPATHY PERIPHERAL
     Dosage: 75 MG, 2X/DAY
     Dates: start: 2018

REACTIONS (4)
  - Feeling abnormal [Recovered/Resolved]
  - Thinking abnormal [Recovered/Resolved]
  - Abdominal discomfort [Recovered/Resolved]
  - Malaise [Recovered/Resolved]
